FAERS Safety Report 4503704-5 (Version None)
Quarter: 2004Q4

REPORT INFORMATION
  Report Type: 
  Country: None (occurrence: None)
  Receive Date: 20041115
  Receipt Date: 20041103
  Transmission Date: 20050328
  Serious: Yes (Hospitalization, Other)
  Sender: FDA-Public Use
  Company Number: HQWYE467101OCT04

PATIENT
  Age: 83 Year
  Sex: Male

DRUGS (7)
  1. PANTOLOC (PANTOPRAZOLE, TABLET, DELAYED RELEASE) [Suspect]
     Indication: ABDOMINAL PAIN UPPER
     Dosage: 20 MG 1X PER 1 DAY
     Route: 048
     Dates: start: 20040215, end: 20040317
  2. GINKGO BILOBA (GINKGO BILOBA, ) [Suspect]
     Dosage: SOME DOSE FORM SOMETIMES
     Dates: start: 20040101, end: 20040317
  3. PERSANTIN [Suspect]
     Indication: CEREBRAL THROMBOSIS
     Dosage: 400 MG 1X PER 1  DAY
     Route: 048
     Dates: start: 20040218, end: 20040317
  4. PERSANTIN [Suspect]
     Indication: CEREBRAL THROMBOSIS
     Dosage: 400 MG 1X PER 1  DAY
     Route: 048
     Dates: start: 20040101
  5. ASPIRIN [Concomitant]
  6. DIOVAN [Concomitant]
  7. HYDROCHLOROTHIAZIDE [Concomitant]

REACTIONS (8)
  - CEREBRAL INFARCTION [None]
  - CHOLESTASIS [None]
  - DIARRHOEA [None]
  - FEELING ABNORMAL [None]
  - HEADACHE [None]
  - HEPATOTOXICITY [None]
  - NAUSEA [None]
  - PYREXIA [None]
